FAERS Safety Report 5005821-2 (Version None)
Quarter: 2006Q2

REPORT INFORMATION
  Report Type: 
  Country: None (occurrence: None)
  Receive Date: 20060515
  Receipt Date: 20060503
  Transmission Date: 20061013
  Serious: Yes (Other)
  Sender: FDA-Public Use
  Company Number: 224691

PATIENT
  Age: 58 Year
  Sex: Female

DRUGS (3)
  1. NUTROPIN [Suspect]
     Indication: GROWTH HORMONE DEFICIENCY
     Dates: start: 19991101
  2. DILANTIN [Concomitant]
  3. KEPPRA [Concomitant]

REACTIONS (14)
  - DEAFNESS [None]
  - DIZZINESS [None]
  - EYE MOVEMENT DISORDER [None]
  - FALL [None]
  - GAIT DISTURBANCE [None]
  - HYPERHIDROSIS [None]
  - HYPOAESTHESIA [None]
  - IATROGENIC INJURY [None]
  - INTRACRANIAL ANEURYSM [None]
  - MUSCLE SPASMS [None]
  - NODULE [None]
  - OEDEMA PERIPHERAL [None]
  - PAIN IN EXTREMITY [None]
  - PETIT MAL EPILEPSY [None]
